FAERS Safety Report 22103830 (Version 1)
Quarter: 2023Q1

REPORT INFORMATION
  Report Type: Spontaneous
  Country: US (occurrence: None)
  Receive Date: 20230315
  Receipt Date: 20230315
  Transmission Date: 20230418
  Serious: Yes (Other)
  Sender: FDA-Public Use
  Company Number: None

PATIENT
  Age: 45 Year
  Sex: Male

DRUGS (1)
  1. SPRYCEL [Suspect]
     Active Substance: DASATINIB
     Indication: Chronic myeloid leukaemia
     Dosage: FREQUENCY : DAILY;?
     Route: 048
     Dates: start: 20210730, end: 202203

REACTIONS (4)
  - Abdominal distension [None]
  - Dyspnoea [None]
  - Oxygen saturation abnormal [None]
  - Respiratory fatigue [None]

NARRATIVE: CASE EVENT DATE: 20210901
